FAERS Safety Report 4576215-9 (Version None)
Quarter: 2005Q1

REPORT INFORMATION
  Report Type: 
  Country: None (occurrence: None)
  Receive Date: 20050207
  Receipt Date: 20050131
  Transmission Date: 20050727
  Serious: Yes (Death)
  Sender: FDA-Public Use
  Company Number: 2003-03-3525

PATIENT
  Age: 91 Year
  Sex: Female

DRUGS (6)
  1. CELESTONE [Suspect]
     Indication: OSTEOARTHRITIS
     Dosage: 1 ML (3 MG) INTRAMUSCULAR
     Route: 030
     Dates: start: 20020416, end: 20020416
  2. CELEBRA [Suspect]
     Indication: OSTEOARTHRITIS
     Dosage: 100-200MG/AM ORAL
     Route: 030
     Dates: start: 20010516, end: 20020528
  3. ALBYL-E [Suspect]
     Indication: CEREBRAL INFARCTION
     Dosage: 75 MG ORAL
     Route: 048
     Dates: start: 19990101, end: 20020501
  4. XYLOCAINE [Suspect]
     Indication: OSTEOARTHRITIS
     Dosage: 4 MG INTRAMUSCULAR
     Route: 030
     Dates: start: 20020416, end: 20020416
  5. DETRUSITOL (TOLTERODINE TARTRATE) [Concomitant]
  6. MODURETIC MITE [Concomitant]

REACTIONS (2)
  - DUODENAL ULCER HAEMORRHAGE [None]
  - POST PROCEDURAL COMPLICATION [None]
